FAERS Safety Report 14665853 (Version 1)
Quarter: 2018Q1

REPORT INFORMATION
  Report Type: Report from Study
  Country: IL (occurrence: IL)
  Receive Date: 20180321
  Receipt Date: 20180321
  Transmission Date: 20180509
  Serious: Yes (Hospitalization, Other)
  Sender: FDA-Public Use
  Company Number: PHHY2017IL155903

PATIENT
  Age: 76 Year
  Sex: Male

DRUGS (2)
  1. SANDOSTATIN LAR DEPOT [Suspect]
     Active Substance: OCTREOTIDE ACETATE
     Dosage: 20 MG, Q4W
     Route: 030
     Dates: end: 20180115
  2. SANDOSTATIN LAR DEPOT [Suspect]
     Active Substance: OCTREOTIDE ACETATE
     Indication: ACROMEGALY
     Dosage: 20 MG, Q4W
     Route: 030
     Dates: start: 20160106

REACTIONS (8)
  - Arteriovenous fistula occlusion [Recovered/Resolved]
  - Haematoma [Recovered/Resolved]
  - Skin discolouration [Unknown]
  - Musculoskeletal pain [Unknown]
  - Peripheral swelling [Recovering/Resolving]
  - End stage renal disease [Unknown]
  - Swelling [Unknown]
  - Arteriovenous fistula site complication [Unknown]

NARRATIVE: CASE EVENT DATE: 20171018
